FAERS Safety Report 6200056-X (Version None)
Quarter: 2009Q2

REPORT INFORMATION
  Report Type: 
  Country: None (occurrence: None)
  Receive Date: 20090522
  Receipt Date: 20090514
  Transmission Date: 20091009
  Serious: Yes (Hospitalization)
  Sender: FDA-Public Use
  Company Number: DE-AMGEN-QUU343632

PATIENT
  Sex: Male
  Weight: 84 kg

DRUGS (6)
  1. NEUPOGEN [Suspect]
     Indication: PERIPHERAL BLOOD STEM CELL APHERESIS
     Route: 058
     Dates: start: 20081120, end: 20081124
  2. ASPIRIN [Concomitant]
     Route: 048
  3. PARACETAMOL [Concomitant]
     Route: 048
     Dates: start: 20081122, end: 20081124
  4. DICLAC [Concomitant]
     Route: 048
     Dates: start: 20081122
  5. CEFACLOR [Concomitant]
  6. ZOCOR [Concomitant]
     Route: 048

REACTIONS (4)
  - COORDINATION ABNORMAL [None]
  - GLIOBLASTOMA [None]
  - PERSONALITY CHANGE [None]
  - SPEECH DISORDER [None]
